FAERS Safety Report 25557688 (Version 1)
Quarter: 2025Q3

REPORT INFORMATION
  Report Type: Spontaneous
  Country: US (occurrence: US)
  Receive Date: 20250715
  Receipt Date: 20250715
  Transmission Date: 20251020
  Serious: No
  Sender: NOVO NORDISK
  Company Number: US-NOVOPROD-1413469

PATIENT
  Age: 82 Year
  Sex: Female

DRUGS (2)
  1. OZEMPIC [Suspect]
     Active Substance: SEMAGLUTIDE
     Indication: Type 2 diabetes mellitus
     Dosage: 0.25 MG, QW
     Route: 058
     Dates: start: 20250202
  2. NOVOLOG [Concomitant]
     Active Substance: INSULIN ASPART
     Indication: Product used for unknown indication

REACTIONS (7)
  - Memory impairment [Unknown]
  - Confusional state [Unknown]
  - Pain [Unknown]
  - Diabetes mellitus inadequate control [Not Recovered/Not Resolved]
  - Incorrect dose administered by product [Unknown]
  - Product label confusion [Unknown]
  - Wrong technique in product usage process [Unknown]
